APPROVED DRUG PRODUCT: VALSARTAN
Active Ingredient: VALSARTAN
Strength: 320MG
Dosage Form/Route: TABLET;ORAL
Application: A091367 | Product #004 | TE Code: AB
Applicant: ALEMBIC PHARMACEUTICALS LTD
Approved: Jan 5, 2015 | RLD: No | RS: No | Type: RX